FAERS Safety Report 5715846-7 (Version None)
Quarter: 2008Q2

REPORT INFORMATION
  Report Type: 
  Country: None (occurrence: None)
  Receive Date: 20080424
  Receipt Date: 20080414
  Transmission Date: 20081010
  Serious: No
  Sender: FDA-Public Use
  Company Number: US-BAYER-200820164NA

PATIENT
  Age: 56 Year
  Sex: Male
  Weight: 75 kg

DRUGS (2)
  1. MAGNEVIST [Suspect]
     Indication: NUCLEAR MAGNETIC RESONANCE IMAGING
     Dosage: TOTAL DAILY DOSE: 15 ML  UNIT DOSE: 20 ML
     Route: 042
     Dates: start: 20080413, end: 20080413
  2. VICODIN [Concomitant]

REACTIONS (3)
  - BURNING SENSATION [None]
  - NAUSEA [None]
  - URTICARIA [None]
